FAERS Safety Report 8235688-0 (Version None)
Quarter: 2012Q1

REPORT INFORMATION
  Report Type: 
  Country: None (occurrence: None)
  Receive Date: 20120326
  Receipt Date: 20120320
  Transmission Date: 20120608
  Serious: Yes (Death, Other)
  Sender: FDA-Public Use
  Company Number: PHHY2012JP023612

PATIENT
  Age: 52 Year
  Sex: Female

DRUGS (4)
  1. METHOTREXATE [Suspect]
     Indication: METASTATIC GASTRIC CANCER
     Dosage: 15 MG, QW (TOTAL 3 DOSES)
     Route: 037
  2. DOCETAXEL [Concomitant]
  3. S-1 [Concomitant]
  4. PACLITAXEL [Concomitant]
     Route: 033

REACTIONS (4)
  - METASTATIC GASTRIC CANCER [None]
  - CONVULSION [None]
  - BONE MARROW FAILURE [None]
  - DRUG INEFFECTIVE [None]
